FAERS Safety Report 9936801 (Version 1)
Quarter: 2014Q1

REPORT INFORMATION
  Report Type: Spontaneous
  Country: US (occurrence: None)
  Receive Date: 20140109
  Receipt Date: 20140109
  Transmission Date: 20141002
  Serious: Yes (Other)
  Sender: FDA-Public Use
  Company Number: 387859

PATIENT
  Age: 65 Year
  Sex: Male

DRUGS (2)
  1. LEVEMIR (INSULIN DETEMIR) SOLUTION FOR INJECTION, .0024MOL/L [Suspect]
     Indication: TYPE 2 DIABETES MELLITUS
     Dosage: 1000 U, SINGLE
     Dates: start: 20130916, end: 20130916
  2. NOVOLOG (INSULIN ASPART) [Concomitant]

REACTIONS (2)
  - Accidental overdose [None]
  - Blood glucose abnormal [None]
